FAERS Safety Report 15302374 (Version 3)
Quarter: 2019Q1

REPORT INFORMATION
  Report Type: Report from Study
  Country: FR (occurrence: FR)
  Receive Date: 20180821
  Receipt Date: 20190221
  Transmission Date: 20190417
  Serious: Yes (Hospitalization)
  Sender: FDA-Public Use
  Company Number: FR-ASTRAZENECA-2018SE85112

PATIENT
  Age: 23713 Day
  Sex: Female
  Weight: 75 kg

DRUGS (3)
  1. DURVALUMAB. [Suspect]
     Active Substance: DURVALUMAB
     Indication: LUNG ADENOCARCINOMA
     Dosage: 750 MG
     Route: 042
     Dates: start: 20180207
  2. DURVALUMAB. [Suspect]
     Active Substance: DURVALUMAB
     Indication: LUNG ADENOCARCINOMA
     Dosage: 750 MG
     Route: 042
     Dates: start: 20180110
  3. DURVALUMAB. [Suspect]
     Active Substance: DURVALUMAB
     Indication: LUNG ADENOCARCINOMA
     Dosage: 750 MG
     Route: 042
     Dates: start: 20180124

REACTIONS (4)
  - Cough [Recovered/Resolved]
  - Lung disorder [Recovering/Resolving]
  - Alveolitis [Unknown]
  - General physical health deterioration [Unknown]

NARRATIVE: CASE EVENT DATE: 20180222
